FAERS Safety Report 13719171 (Version 1)
Quarter: 2017Q3

REPORT INFORMATION
  Report Type: Spontaneous
  Country: FR (occurrence: FR)
  Receive Date: 20170705
  Receipt Date: 20170705
  Transmission Date: 20171127
  Serious: Yes (Disabling)
  Sender: FDA-Public Use
  Company Number: FR-SA-2017SA081965

PATIENT
  Age: 77 Year
  Sex: Female
  Weight: 82 kg

DRUGS (13)
  1. LASILIX FAIBLE [Concomitant]
     Active Substance: FUROSEMIDE
     Dosage: 20MG STRENGTH?DOSAGE:1 DF IN THE MORNING
     Route: 048
  2. DIFFU K [Concomitant]
     Active Substance: POTASSIUM CHLORIDE
     Dosage: STRENGTH: 600 MG PILLS?DOSAGE:1 DF IN THE MORNING AND 1 IN THE EVENING
     Route: 048
  3. LYRICA [Concomitant]
     Active Substance: PREGABALIN
     Dosage: 25MG STRENGTH?DOSAGE:1 DF IN THE MORNING AND 1 DF IN THE EVENING
     Route: 048
  4. PANTOPRAZOLE [Concomitant]
     Active Substance: PANTOPRAZOLE
     Indication: GASTROOESOPHAGEAL REFLUX DISEASE
     Dosage: 40MG STRENGTH?1 DF IN THE EVENING
     Route: 048
     Dates: start: 2008
  5. COTAREG [Concomitant]
     Active Substance: HYDROCHLOROTHIAZIDE\VALSARTAN
     Indication: HYPERTENSION
     Dosage: 80MG-12.5MG STRENGTH?1 DF IN THE MORNING
     Route: 048
     Dates: start: 20120907
  6. DIAMICRON [Concomitant]
     Active Substance: GLICLAZIDE
     Dosage: 60MG STRENGTH?DOSAGE: ? DF IN THE MORNING
     Route: 048
  7. ADENURIC [Concomitant]
     Active Substance: FEBUXOSTAT
     Indication: BLOOD URIC ACID
     Dosage: 80MG STRENGTH?1 DF IN THE EVENING
     Route: 048
     Dates: start: 20160614
  8. LAMICTAL [Concomitant]
     Active Substance: LAMOTRIGINE
     Dosage: 25MG STRENGTH?1 DF IN THE EVENING
     Route: 048
  9. LANTUS SOLOSTAR [Suspect]
     Active Substance: INSULIN GLARGINE
     Indication: INSULIN-REQUIRING TYPE 2 DIABETES MELLITUS
     Dosage: INJECTION SITE THIGH
     Route: 058
     Dates: start: 20151030
  10. INDAPAMIDE. [Concomitant]
     Active Substance: INDAPAMIDE
     Indication: HYPERTENSION
     Dosage: 1.5MG STRENGTH?DOSAGE:1 DF IN THE MORNING
     Route: 048
     Dates: start: 2013
  11. KARDEGIC [Concomitant]
     Active Substance: ASPIRIN LYSINE
     Indication: ARTERITIS
     Dosage: 75MG STRENGTH?1 DF AT NOON
     Route: 048
     Dates: start: 20121001
  12. EZETROL [Concomitant]
     Active Substance: EZETIMIBE
     Indication: DYSLIPIDAEMIA
     Dosage: 10MG STRENGTH?1 DF IN THE EVENING
     Route: 048
     Dates: start: 20130801
  13. SOLOSTAR [Concomitant]
     Active Substance: DEVICE
     Indication: INSULIN-REQUIRING TYPE 2 DIABETES MELLITUS
     Dates: start: 20151030

REACTIONS (8)
  - Disability [Not Recovered/Not Resolved]
  - Injection site inflammation [Recovering/Resolving]
  - Sleep paralysis [Recovering/Resolving]
  - Oedema peripheral [Unknown]
  - Paraesthesia [Unknown]
  - Muscular weakness [Recovering/Resolving]
  - Muscle spasms [Unknown]
  - Dysuria [Unknown]

NARRATIVE: CASE EVENT DATE: 201609
